FAERS Safety Report 6088063-1 (Version None)
Quarter: 2009Q1

REPORT INFORMATION
  Report Type: 
  Country: None (occurrence: None)
  Receive Date: 20090218
  Receipt Date: 20090206
  Transmission Date: 20090719
  Serious: Yes (Other)
  Sender: FDA-Public Use
  Company Number: DSA_33179_2009

PATIENT
  Age: 54 Year
  Sex: Male

DRUGS (1)
  1. TIAZAC [Suspect]
     Indication: DRUG USE FOR UNKNOWN INDICATION
     Dosage: (180 MG, IN THE EVENING ORAL)
     Route: 048

REACTIONS (5)
  - ANXIETY [None]
  - DYSPNOEA [None]
  - HYPERHIDROSIS [None]
  - HYPERTENSION [None]
  - TACHYCARDIA [None]
